FAERS Safety Report 4444723-7 (Version None)
Quarter: 2004Q3

REPORT INFORMATION
  Report Type: 
  Country: None (occurrence: None)
  Receive Date: 20040902
  Receipt Date: 20040818
  Transmission Date: 20050211
  Serious: Yes (Death)
  Sender: FDA-Public Use
  Company Number: SUS1-2004-00485

PATIENT
  Age: 18 Year
  Sex: Male
  Weight: 78 kg

DRUGS (3)
  1. AGRYLIN [Suspect]
     Indication: ESSENTIAL THROMBOCYTHAEMIA
  2. METHYLENEDIOXYAMPHETAMINE (METHYLENEDIOXYAMPHETAMINE) [Suspect]
     Dates: start: 20040806
  3. HYDROXYUREA [Concomitant]

REACTIONS (5)
  - CARDIAC DISORDER [None]
  - DILATATION VENTRICULAR [None]
  - FIBROMUSCULAR DYSPLASIA [None]
  - SUDDEN DEATH [None]
  - VENTRICULAR HYPERTROPHY [None]
